FAERS Safety Report 4847195-3 (Version None)
Quarter: 2005Q4

REPORT INFORMATION
  Report Type: 
  Country: None (occurrence: None)
  Receive Date: 20051207
  Receipt Date: 20050412
  Transmission Date: 20060501
  Serious: Yes (Death, Hospitalization, Other)
  Sender: FDA-Public Use
  Company Number: JP-MERCK-0505USA03365

PATIENT
  Age: 49 Year
  Sex: Female

DRUGS (12)
  1. PEPCID RPD [Suspect]
     Indication: GASTRITIS
     Route: 048
     Dates: start: 20050119, end: 20050207
  2. LAFUTIDINE [Suspect]
     Indication: GASTRITIS
     Route: 048
     Dates: start: 20050205, end: 20050321
  3. LOXONIN [Concomitant]
     Indication: UPPER RESPIRATORY TRACT INFECTION
     Route: 048
     Dates: start: 20050205, end: 20050207
  4. CRAVIT [Concomitant]
     Indication: UPPER RESPIRATORY TRACT INFECTION
     Route: 048
     Dates: start: 20050205, end: 20050207
  5. SILECE [Concomitant]
     Indication: BIPOLAR I DISORDER
     Route: 048
     Dates: end: 20050331
  6. SEPAZON [Suspect]
     Indication: BIPOLAR I DISORDER
     Route: 048
     Dates: end: 20050331
  7. AMOBAN [Concomitant]
     Indication: BIPOLAR I DISORDER
     Route: 048
     Dates: end: 20050331
  8. SELBEX [Concomitant]
     Indication: UPPER RESPIRATORY TRACT INFECTION
     Route: 048
     Dates: start: 20050205, end: 20050207
  9. ASTOMIN [Concomitant]
     Indication: THYMOMA
     Route: 048
     Dates: start: 20050110, end: 20050321
  10. NEORAL [Concomitant]
     Indication: APLASIA PURE RED CELL
     Route: 048
     Dates: end: 20050324
  11. CODEINE PHOSPHATE [Concomitant]
     Indication: THYMOMA
     Route: 048
     Dates: start: 20041115, end: 20050217
  12. MAGNESIUM OXIDE [Concomitant]
     Indication: CONSTIPATION
     Route: 048
     Dates: start: 20050208

REACTIONS (10)
  - BLOOD PRESSURE DECREASED [None]
  - CONSTIPATION [None]
  - DEPRESSED LEVEL OF CONSCIOUSNESS [None]
  - DRUG ERUPTION [None]
  - ECZEMA [None]
  - INSOMNIA [None]
  - MYOCARDIAL INFARCTION [None]
  - TOXIC EPIDERMAL NECROLYSIS [None]
  - UPPER RESPIRATORY TRACT INFECTION [None]
  - VOMITING [None]
